FAERS Safety Report 4410058-1 (Version None)
Quarter: 2004Q3

REPORT INFORMATION
  Report Type: 
  Country: None (occurrence: None)
  Receive Date: 20040728
  Receipt Date: 20040721
  Transmission Date: 20050211
  Serious: Yes (Hospitalization)
  Sender: FDA-Public Use
  Company Number: PHEH2004US07918

PATIENT
  Age: 23 Year
  Sex: Female

DRUGS (2)
  1. ZELNORM [Suspect]
     Indication: IRRITABLE BOWEL SYNDROME
     Dosage: 6 MG, BID
     Route: 048
     Dates: start: 20040601, end: 20040701
  2. ORAL CONTRACEPTIVE NOS [Suspect]
     Indication: CONTRACEPTION

REACTIONS (5)
  - ABDOMINAL PAIN [None]
  - DRUG INTERACTION [None]
  - ISCHAEMIA [None]
  - NAUSEA [None]
  - VOMITING [None]
